FAERS Safety Report 23940117 (Version 1)
Quarter: 2024Q2

REPORT INFORMATION
  Report Type: Spontaneous
  Country: IT (occurrence: IT)
  Receive Date: 20240605
  Receipt Date: 20240605
  Transmission Date: 20240716
  Serious: Yes (Hospitalization, Other)
  Sender: FDA-Public Use
  Company Number: IT-EMA-20160227-ashishvp-105437182

PATIENT
  Age: 45 Month
  Sex: Female

DRUGS (5)
  1. CETIRIZINE [Suspect]
     Active Substance: CETIRIZINE HYDROCHLORIDE
     Indication: Tonsillitis
     Dosage: UNK
     Route: 065
  2. LEVODROPROPIZINE [Suspect]
     Active Substance: LEVODROPROPIZINE
     Indication: Tonsillitis
     Dosage: UNK
     Route: 065
  3. ACETAMINOPHEN\CHLORPHENIRAMINE MALEATE [Suspect]
     Active Substance: ACETAMINOPHEN\CHLORPHENIRAMINE MALEATE
     Indication: Tonsillitis
     Dosage: UNK
     Route: 065
  4. FLUARIX NOS [Suspect]
     Active Substance: INFLUENZA VIRUS VACCINE
     Indication: Prophylaxis
     Dosage: UNK
     Route: 065
  5. ACETAMINOPHEN\DEXCHLORPHENIRAMINE MALEATE [Suspect]
     Active Substance: ACETAMINOPHEN\DEXCHLORPHENIRAMINE MALEATE
     Indication: Tonsillitis
     Dosage: UNK
     Route: 065

REACTIONS (1)
  - Stevens-Johnson syndrome [Recovered/Resolved]
